FAERS Safety Report 21497033 (Version 2)
Quarter: 2022Q4

REPORT INFORMATION
  Report Type: Spontaneous
  Country: IN (occurrence: IN)
  Receive Date: 20221023
  Receipt Date: 20221229
  Transmission Date: 20230113
  Serious: Yes (Hospitalization)
  Sender: FDA-Public Use
  Company Number: IN-GLENMARK PHARMACEUTICALS-2022GMK075823

PATIENT

DRUGS (1)
  1. TELMISARTAN [Suspect]
     Active Substance: TELMISARTAN
     Indication: Product used for unknown indication
     Dosage: 30 DOSAGE FORM (30 TABLETS)
     Route: 065

REACTIONS (1)
  - Overdose [Unknown]
